FAERS Safety Report 7343098-3 (Version None)
Quarter: 2011Q1

REPORT INFORMATION
  Report Type: 
  Country: None (occurrence: None)
  Receive Date: 20110310
  Receipt Date: 20110225
  Transmission Date: 20110831
  Serious: Yes (Hospitalization, Other)
  Sender: FDA-Public Use
  Company Number: AU-ELI_LILLY_AND_COMPANY-AU201102007327

PATIENT
  Age: 75 Year
  Sex: Male

DRUGS (5)
  1. RANITIDINE [Concomitant]
     Dosage: 300MG X 1 AT NIGHT
  2. RAMIPRIL [Concomitant]
     Dosage: 5MG  X 2
  3. EFFIENT [Suspect]
     Dosage: 10 MG, UNK
  4. CITALOPRAM [Concomitant]
     Dosage: 60MG X 1
  5. PANTOPRAZOLE [Concomitant]
     Dosage: 40MG X 1

REACTIONS (2)
  - BLOOD GLUCOSE DECREASED [None]
  - LOSS OF CONSCIOUSNESS [None]
